FAERS Safety Report 15907347 (Version 2)
Quarter: 2019Q3

REPORT INFORMATION
  Report Type: Spontaneous
  Country: US (occurrence: US)
  Receive Date: 20190204
  Receipt Date: 20190722
  Transmission Date: 20191004
  Serious: Yes (Hospitalization, Other)
  Sender: FDA-Public Use
  Company Number: US-SA-2019SA027443

PATIENT
  Sex: Female

DRUGS (1)
  1. AUBAGIO [Suspect]
     Active Substance: TERIFLUNOMIDE
     Indication: MULTIPLE SCLEROSIS
     Dosage: 14 MG, QD
     Route: 048
     Dates: start: 20181106

REACTIONS (7)
  - Renal cancer [Unknown]
  - Product dose omission [Unknown]
  - Multiple sclerosis relapse [Unknown]
  - Feeling abnormal [Unknown]
  - Neuropathy peripheral [Unknown]
  - Limb discomfort [Unknown]
  - Lymphadenopathy [Unknown]
